FAERS Safety Report 8213720-8 (Version None)
Quarter: 2012Q1

REPORT INFORMATION
  Report Type: 
  Country: None (occurrence: None)
  Receive Date: 20120315
  Receipt Date: 20120306
  Transmission Date: 20120608
  Serious: Yes (Other)
  Sender: FDA-Public Use
  Company Number: US-ASTRAZENECA-2012SE15361

PATIENT
  Age: 68 Year
  Sex: Female
  Weight: 75.7 kg

DRUGS (2)
  1. ARIMIDEX [Suspect]
     Indication: BREAST CANCER
     Route: 048
     Dates: start: 20080101
  2. CLARITIDINE [Concomitant]
     Indication: HYPERSENSITIVITY

REACTIONS (4)
  - LIP SWELLING [None]
  - HEADACHE [None]
  - BLINDNESS [None]
  - NECK PAIN [None]
